FAERS Safety Report 24576548 (Version 2)
Quarter: 2025Q3

REPORT INFORMATION
  Report Type: Spontaneous
  Country: EU (occurrence: EU)
  Receive Date: 20241104
  Receipt Date: 20250809
  Transmission Date: 20251020
  Serious: Yes (Hospitalization, Other)
  Sender: ALEXION PHARMACEUTICALS
  Company Number: EU-ASTRAZENECA-202410EEA022372ES

PATIENT
  Age: 58 Year
  Sex: Female

DRUGS (9)
  1. DAPAGLIFLOZIN [Suspect]
     Active Substance: DAPAGLIFLOZIN
     Indication: Type 2 diabetes mellitus
  2. FULVESTRANT [Suspect]
     Active Substance: FULVESTRANT
  3. FULVESTRANT [Suspect]
     Active Substance: FULVESTRANT
  4. ARIMIDEX [Suspect]
     Active Substance: ANASTROZOLE
     Indication: Breast cancer female
  5. PALBOCICLIB [Suspect]
     Active Substance: PALBOCICLIB
  6. METFORMIN [Concomitant]
     Active Substance: METFORMIN HYDROCHLORIDE
     Indication: Type 2 diabetes mellitus
  7. ALPELISIB [Concomitant]
     Active Substance: ALPELISIB
  8. INSULIN NOS [Concomitant]
     Active Substance: INSULIN NOS
  9. LETROZOLE [Concomitant]
     Active Substance: LETROZOLE

REACTIONS (6)
  - Metastases to liver [Unknown]
  - Metastases to the mediastinum [Unknown]
  - Diabetic ketoacidosis [Unknown]
  - Tumour marker increased [Unknown]
  - Transaminases increased [Unknown]
  - Hepatic steatosis [Unknown]

NARRATIVE: CASE EVENT DATE: 20200101
